FAERS Safety Report 7680812-1 (Version None)
Quarter: 2011Q3

REPORT INFORMATION
  Report Type: 
  Country: None (occurrence: None)
  Receive Date: 20110812
  Receipt Date: 20110803
  Transmission Date: 20111222
  Serious: Yes (Other)
  Sender: FDA-Public Use
  Company Number: PT-MERCK-1108PRT00001

PATIENT
  Age: 72 Year
  Sex: Male

DRUGS (6)
  1. MEVACOR [Concomitant]
     Route: 065
  2. COZAAR [Suspect]
     Route: 065
  3. NIFEDIPINE [Concomitant]
     Route: 065
  4. SULPIRIDE [Concomitant]
     Route: 065
  5. PROPRANOLOL HYDROCHLORIDE [Concomitant]
     Route: 065
  6. TRIMETAZIDINE HYDROCHLORIDE [Concomitant]
     Route: 065

REACTIONS (1)
  - SYSTEMIC LUPUS ERYTHEMATOSUS [None]
